FAERS Safety Report 11267455 (Version 1)
Quarter: 2015Q3

REPORT INFORMATION
  Report Type: Spontaneous
  Country: US (occurrence: US)
  Receive Date: 20150713
  Receipt Date: 20150713
  Transmission Date: 20151125
  Serious: Yes (Other)
  Sender: FDA-Public Use
  Company Number: US-BAXTER-2015BAX037574

PATIENT
  Age: 71 Year
  Sex: Female

DRUGS (1)
  1. LIDOCAINE HYDROCHLORIDE AND 5% DEXTROSE INJECTION, USP [Suspect]
     Active Substance: LIDOCAINE HYDROCHLORIDE
     Indication: PRODUCT USED FOR UNKNOWN INDICATION
     Dosage: APPROXIMATELY 1800 MG OF LIDOCAINE
     Route: 042

REACTIONS (3)
  - Accidental overdose [Recovered/Resolved]
  - Unresponsive to stimuli [Recovered/Resolved]
  - Drug administration error [Recovered/Resolved]
